FAERS Safety Report 24958320 (Version 2)
Quarter: 2025Q1

REPORT INFORMATION
  Report Type: Spontaneous
  Country: FR (occurrence: FR)
  Receive Date: 20250212
  Receipt Date: 20250305
  Transmission Date: 20250408
  Serious: Yes (Hospitalization, Other)
  Sender: BRISTOL-MYERS SQUIBB COMPANY
  Company Number: None

PATIENT
  Age: 77 Year
  Sex: Female

DRUGS (7)
  1. LENALIDOMIDE [Suspect]
     Active Substance: LENALIDOMIDE
     Indication: Anticoagulant therapy
     Route: 048
     Dates: start: 20250122
  2. ELIQUIS [Suspect]
     Active Substance: APIXABAN
     Indication: Anticoagulant therapy
     Route: 048
     Dates: start: 20250122
  3. DARATUMUMAB [Suspect]
     Active Substance: DARATUMUMAB
     Indication: Plasma cell myeloma refractory
     Route: 042
     Dates: start: 20250122, end: 20250122
  4. BACTRIM [Suspect]
     Active Substance: SULFAMETHOXAZOLE\TRIMETHOPRIM
     Indication: Infection
     Route: 048
     Dates: start: 20250124, end: 20250124
  5. DEXAMETHASONE [Suspect]
     Active Substance: DEXAMETHASONE
     Indication: Plasma cell myeloma refractory
     Route: 048
     Dates: start: 20250122
  6. VALACYCLOVIR HYDROCHLORIDE [Suspect]
     Active Substance: VALACYCLOVIR HYDROCHLORIDE
     Indication: Antiviral treatment
     Route: 048
     Dates: start: 20250122
  7. RAMIPRIL [Concomitant]
     Active Substance: RAMIPRIL
     Indication: Product used for unknown indication

REACTIONS (2)
  - Acute generalised exanthematous pustulosis [Not Recovered/Not Resolved]
  - Off label use [Unknown]

NARRATIVE: CASE EVENT DATE: 20250124
